FAERS Safety Report 4579066-4 (Version None)
Quarter: 2005Q1

REPORT INFORMATION
  Report Type: 
  Country: None (occurrence: None)
  Receive Date: 20050127
  Receipt Date: 20040903
  Transmission Date: 20050727
  Serious: No
  Sender: FDA-Public Use
  Company Number: USA040977360

PATIENT
  Age: 8 Year
  Sex: Male
  Weight: 27 kg

DRUGS (5)
  1. STRATTERA [Suspect]
     Indication: ATTENTION DEFICIT/HYPERACTIVITY DISORDER
     Dosage: 72 MG DAY
     Dates: start: 20040820, end: 20040915
  2. FLUOXETINE [Concomitant]
  3. ADDERALL XR 10 [Concomitant]
  4. ADDERALL 10 [Concomitant]
  5. TRAZADONE(TRAZODONE) [Concomitant]

REACTIONS (2)
  - ABNORMAL BEHAVIOUR [None]
  - PRESCRIBED OVERDOSE [None]
